FAERS Safety Report 10600856 (Version 1)
Quarter: 2014Q4

REPORT INFORMATION
  Report Type: Spontaneous
  Country: US (occurrence: US)
  Receive Date: 20141124
  Receipt Date: 20141124
  Transmission Date: 20150529
  Serious: Yes (Other)
  Sender: FDA-Public Use
  Company Number: US-BAYER-2014-173357

PATIENT
  Age: 17 Year
  Sex: Female

DRUGS (1)
  1. SKYLA [Suspect]
     Active Substance: LEVONORGESTREL
     Indication: CONTRACEPTION
     Dosage: 14 MCG/24HR, CONT
     Route: 015
     Dates: start: 201308

REACTIONS (5)
  - Haemorrhage in pregnancy [None]
  - Drug ineffective [None]
  - Device dislocation [None]
  - Nausea [None]
  - Pregnancy with contraceptive device [None]

NARRATIVE: CASE EVENT DATE: 2014
